FAERS Safety Report 13467005 (Version 1)
Quarter: 2017Q2

REPORT INFORMATION
  Report Type: Report from Study
  Country: None (occurrence: DE)
  Receive Date: 20170421
  Receipt Date: 20170421
  Transmission Date: 20170830
  Serious: Yes (Hospitalization)
  Sender: FDA-Public Use
  Company Number: DE-ABBVIE-17K-062-1948535-00

PATIENT
  Age: 67 Year
  Sex: Male

DRUGS (10)
  1. VITAMIN B COMPLEX WITH C [Concomitant]
     Active Substance: ASCORBIC ACID\CALCIUM PANTOTHENATE\CYANOCOBALAMIN\NIACINAMIDE\PYRIDOXINE HYDROCHLORIDE\RIBOFLAVIN\THIAMINE MONONITRATE
     Indication: PRODUCT USED FOR UNKNOWN INDICATION
  2. RIVASTIGMIN [Concomitant]
     Active Substance: RIVASTIGMINE
     Indication: PRODUCT USED FOR UNKNOWN INDICATION
  3. CLOZAPIN [Concomitant]
     Active Substance: CLOZAPINE
     Indication: PRODUCT USED FOR UNKNOWN INDICATION
  4. DUODOPA [Suspect]
     Active Substance: CARBIDOPA\LEVODOPA
     Indication: PARKINSON^S DISEASE
     Dosage: MD 7.0 ML / CRD 2.6 ML/H / ED 1.0 ML
     Route: 050
     Dates: start: 20140718
  5. LEVODOPA BENSERAZIDE [Concomitant]
     Active Substance: BENSERAZIDE\LEVODOPA
     Indication: PRODUCT USED FOR UNKNOWN INDICATION
     Dosage: 100 MG + 25 MG
  6. VENLAFAXIN [Concomitant]
     Active Substance: VENLAFAXINE HYDROCHLORIDE
     Indication: PRODUCT USED FOR UNKNOWN INDICATION
  7. RIVASTIGMIN [Concomitant]
     Active Substance: RIVASTIGMINE
  8. PIRENZEPIN [Concomitant]
     Active Substance: PIRENZEPINE
     Indication: PRODUCT USED FOR UNKNOWN INDICATION
  9. PREGABALIN. [Concomitant]
     Active Substance: PREGABALIN
     Indication: PRODUCT USED FOR UNKNOWN INDICATION
  10. KETOCONAZOL [Concomitant]
     Active Substance: KETOCONAZOLE
     Indication: PRODUCT USED FOR UNKNOWN INDICATION
     Dosage: 20 MG/G

REACTIONS (3)
  - Medical device removal [Not Recovered/Not Resolved]
  - Fall [Not Recovered/Not Resolved]
  - Traumatic haematoma [Not Recovered/Not Resolved]

NARRATIVE: CASE EVENT DATE: 20170415
